FAERS Safety Report 8898745 (Version 2)
Quarter: 2012Q4

REPORT INFORMATION
  Report Type: 
  Country: US (occurrence: US)
  Receive Date: 20121109
  Receipt Date: 20121228
  Transmission Date: 20130627
  Serious: Yes (Death)
  Sender: FDA-Public Use
  Company Number: US-PFIZER INC-2012277515

PATIENT
  Age: 54 Year
  Sex: Male

DRUGS (1)
  1. VFEND [Suspect]
     Indication: MYCOSIS
     Dosage: 200 mg, 2x/day
     Dates: start: 20121019

REACTIONS (1)
  - Lung neoplasm malignant [Fatal]
